FAERS Safety Report 23992210 (Version 1)
Quarter: 2024Q2

REPORT INFORMATION
  Report Type: Report from Study
  Country: CO (occurrence: CO)
  Receive Date: 20240620
  Receipt Date: 20240620
  Transmission Date: 20240716
  Serious: Yes (Other)
  Sender: FDA-Public Use
  Company Number: CO-ABBVIE-5806811

PATIENT
  Sex: Female
  Weight: 3 kg

DRUGS (1)
  1. BOTOX [Suspect]
     Active Substance: ONABOTULINUMTOXINA
     Indication: Maternal exposure timing unspecified
     Dosage: TIME INTERVAL: AS NECESSARY
     Route: 064

REACTIONS (2)
  - Heart rate decreased [Unknown]
  - Foetal exposure during pregnancy [Unknown]
